FAERS Safety Report 6133440-3 (Version None)
Quarter: 2009Q1

REPORT INFORMATION
  Report Type: 
  Country: None (occurrence: None)
  Receive Date: 20090324
  Receipt Date: 20090309
  Transmission Date: 20090719
  Serious: Yes (Hospitalization)
  Sender: FDA-Public Use
  Company Number: AE 2009-036

PATIENT
  Age: 62 Year
  Sex: Female

DRUGS (4)
  1. CLOZAPINE [Suspect]
     Indication: MANIA
     Dosage: 400 MG DAILY PO
     Route: 048
     Dates: start: 20061124
  2. PROPHYLACTIC ANTIBIOTICS [Concomitant]
  3. ANTIDIARRHEALS [Concomitant]
  4. ANTIEMETICS [Concomitant]

REACTIONS (6)
  - COLITIS MICROSCOPIC [None]
  - DEHYDRATION [None]
  - DISEASE RECURRENCE [None]
  - DRUG INEFFECTIVE [None]
  - GENERAL PHYSICAL HEALTH DETERIORATION [None]
  - MANIA [None]
